FAERS Safety Report 20331890 (Version 1)
Quarter: 2022Q1

REPORT INFORMATION
  Report Type: Spontaneous
  Country: FR (occurrence: FR)
  Receive Date: 20220113
  Receipt Date: 20220113
  Transmission Date: 20220423
  Serious: Yes (Hospitalization)
  Sender: FDA-Public Use
  Company Number: None

PATIENT
  Age: 33 Year
  Sex: Male

DRUGS (4)
  1. XANAX [Suspect]
     Active Substance: ALPRAZOLAM
     Route: 065
  2. ALCOHOL [Suspect]
     Active Substance: ALCOHOL
     Route: 048
  3. COCAINE [Suspect]
     Active Substance: COCAINE
     Route: 042
  4. TOBACCO LEAF [Suspect]
     Active Substance: TOBACCO LEAF
     Route: 055

REACTIONS (5)
  - Inflammation [Recovered/Resolved]
  - Injection site injury [Recovered/Resolved with Sequelae]
  - Administration site scar [Recovering/Resolving]
  - Lymphangitis [Recovered/Resolved]
  - Drug abuse [Recovering/Resolving]

NARRATIVE: CASE EVENT DATE: 20191101
